FAERS Safety Report 7752431-X (Version None)
Quarter: 2011Q3

REPORT INFORMATION
  Report Type: 
  Country: None (occurrence: None)
  Receive Date: 20110915
  Receipt Date: 20110909
  Transmission Date: 20111222
  Serious: Yes (Other)
  Sender: FDA-Public Use
  Company Number: PHEH2011US03726

PATIENT
  Sex: Female

DRUGS (25)
  1. CALCIUM CARBONATE [Concomitant]
     Dosage: 50000 TWICE WEEK
  2. SINGULAIR [Concomitant]
     Dosage: 10 MG, UNK
  3. VITAMIN E [Concomitant]
     Dosage: 500 MG, UNK
  4. MILATON [Concomitant]
     Dosage: 4 MG, UNK
  5. CORSEN D [Concomitant]
     Dosage: FOUR TIMES DAILY
  6. RECLAST [Suspect]
     Dosage: 5 MG/100 ML PER YEAR
     Route: 042
     Dates: start: 20110810
  7. TUMBS [Concomitant]
     Dosage: UNK UKN, UNK
  8. FLONASE [Concomitant]
     Dosage: UNK UKN, UNK
  9. FUROSOMIDE [Concomitant]
     Dosage: 40 MG, UNK
  10. SIMVAFTIN [Concomitant]
     Dosage: UNK UKN, UNK
  11. COREG [Concomitant]
     Dosage: 75 MG, TID
  12. TRAZODONE HCL [Concomitant]
     Dosage: 50 MG, UNK
  13. HYDROCODONE [Concomitant]
     Dosage: 10 MG FOUR TIMES DAILY
  14. LOVAZA [Concomitant]
     Dosage: UNK UKN, UNK
  15. MINERAL TAB [Concomitant]
     Dosage: UNK UKN, UNK
  16. PROZAC [Concomitant]
     Dosage: 20 MG, UNK
  17. VITAMIN B-12 [Concomitant]
     Dosage: UNK UKN, UNK
  18. BENO [Concomitant]
     Dosage: UNK UKN, UNK
  19. PRILOFEC [Concomitant]
     Dosage: 20 MG, UNK
  20. RELAPHEN [Concomitant]
  21. VITAMIN D [Concomitant]
     Dosage: 50000 UNITS
  22. STIRNOLACTONE [Concomitant]
     Dosage: 25 MG, UNK
  23. PREMPRO [Concomitant]
     Dosage: 0.625 MG, UNK
  24. SOMA [Concomitant]
     Dosage: 350 MG, UNK
  25. ACIDOLPHALUS [Concomitant]
     Dosage: UNK UKN, UNK

REACTIONS (8)
  - RIB FRACTURE [None]
  - ABDOMINAL PAIN [None]
  - NAUSEA [None]
  - ARTHRALGIA [None]
  - OSTEOPOROSIS [None]
  - FLATULENCE [None]
  - ARTHRITIS [None]
  - PAIN IN JAW [None]
